FAERS Safety Report 11337664 (Version 1)
Quarter: 2015Q3

REPORT INFORMATION
  Report Type: Spontaneous
  Country: US (occurrence: US)
  Receive Date: 20150803
  Receipt Date: 20150803
  Transmission Date: 20151125
  Serious: No
  Sender: FDA-Public Use
  Company Number: US-ELI_LILLY_AND_COMPANY-US200910003830

PATIENT
  Age: 75 Year
  Sex: Male

DRUGS (2)
  1. THORAZINE [Concomitant]
     Active Substance: CHLORPROMAZINE
  2. ZYPREXA [Suspect]
     Active Substance: OLANZAPINE
     Indication: PSYCHOTIC DISORDER
     Dosage: 15 MG, DAILY (1/D)
     Dates: start: 1999

REACTIONS (2)
  - Incorrect product storage [Unknown]
  - Circumstance or information capable of leading to medication error [Unknown]
